FAERS Safety Report 22200265 (Version 1)
Quarter: 2023Q2

REPORT INFORMATION
  Report Type: Spontaneous
  Country: US (occurrence: None)
  Receive Date: 20230412
  Receipt Date: 20230412
  Transmission Date: 20230721
  Serious: Yes (Hospitalization, Other)
  Sender: FDA-Public Use
  Company Number: US-ROCHE-3324866

PATIENT
  Age: 52 Year
  Sex: Female

DRUGS (2)
  1. OCREVUS [Suspect]
     Active Substance: OCRELIZUMAB
     Indication: Multiple sclerosis
     Route: 065
  2. ZEJULA [Suspect]
     Active Substance: NIRAPARIB
     Indication: Ovarian cancer
     Dosage: DOSE WAS REDUCED TO 1 CAPSULE DALLY DUE TO PLATELETS (DOSE REDUCED TO 100 MG)
     Route: 048
     Dates: start: 20200111

REACTIONS (27)
  - Platelet count decreased [Recovering/Resolving]
  - Pain [Unknown]
  - Back injury [Unknown]
  - Constipation [Not Recovered/Not Resolved]
  - Ankle fracture [Unknown]
  - Stomatitis [Unknown]
  - Tongue disorder [Unknown]
  - Fungal foot infection [Not Recovered/Not Resolved]
  - Tinea pedis [Not Recovered/Not Resolved]
  - Photosensitivity reaction [Not Recovered/Not Resolved]
  - Insomnia [Unknown]
  - Feeling abnormal [Unknown]
  - Vomiting [Recovering/Resolving]
  - Fall [Unknown]
  - Wrist fracture [Recovering/Resolving]
  - COVID-19 [Unknown]
  - Pulmonary mass [Unknown]
  - Arthralgia [Not Recovered/Not Resolved]
  - Musculoskeletal chest pain [Unknown]
  - Asthenia [Unknown]
  - Balance disorder [Unknown]
  - Blood test abnormal [Unknown]
  - B-lymphocyte count decreased [Unknown]
  - Nausea [Unknown]
  - Mobility decreased [Unknown]
  - Onychomycosis [Unknown]
  - Condition aggravated [Not Recovered/Not Resolved]

NARRATIVE: CASE EVENT DATE: 20201021
